FAERS Safety Report 5000405-4 (Version None)
Quarter: 2006Q2

REPORT INFORMATION
  Report Type: 
  Country: None (occurrence: None)
  Receive Date: 20060511
  Receipt Date: 20050414
  Transmission Date: 20061013
  Serious: Yes (Other)
  Sender: FDA-Public Use
  Company Number: US-MERCK-0504USA02819

PATIENT
  Age: 48 Year
  Sex: Female
  Weight: 61 kg

DRUGS (10)
  1. VIOXX [Suspect]
     Indication: MULTIPLE SCLEROSIS
     Route: 048
     Dates: start: 20030101, end: 20031201
  2. VIOXX [Suspect]
     Indication: PAIN
     Route: 048
     Dates: start: 20030101, end: 20031201
  3. ENALAPRIL COMP [Concomitant]
     Indication: BLOOD PRESSURE
     Route: 065
     Dates: start: 20040115, end: 20060119
  4. PLAVIX [Concomitant]
     Route: 065
     Dates: start: 20040701, end: 20060119
  5. PREMARIN [Concomitant]
     Indication: HORMONE THERAPY
     Route: 065
     Dates: start: 19990101, end: 20060119
  6. COREG [Concomitant]
     Indication: HEART RATE IRREGULAR
     Route: 065
     Dates: end: 20060119
  7. LOPRESSOR [Concomitant]
     Indication: HEART RATE IRREGULAR
     Route: 065
     Dates: end: 20060119
  8. ZANAFLEX [Concomitant]
     Indication: MUSCLE SPASMS
     Route: 065
  9. TYLENOL W/ CODEINE [Concomitant]
     Indication: PAIN
     Route: 065
  10. BETASERON [Concomitant]
     Indication: MULTIPLE SCLEROSIS
     Route: 065

REACTIONS (4)
  - BLOOD PRESSURE [None]
  - CEREBROVASCULAR ACCIDENT [None]
  - OEDEMA [None]
  - OVERDOSE [None]
